FAERS Safety Report 7638917-7 (Version None)
Quarter: 2011Q3

REPORT INFORMATION
  Report Type: 
  Country: None (occurrence: None)
  Receive Date: 20110727
  Receipt Date: 20110713
  Transmission Date: 20111222
  Serious: Yes (Hospitalization, Other)
  Sender: FDA-Public Use
  Company Number: DE-ALEXION-A201100968

PATIENT
  Sex: Female

DRUGS (2)
  1. MEROPENEM [Concomitant]
     Route: 042
  2. SOLIRIS [Suspect]
     Indication: HAEMOLYTIC URAEMIC SYNDROME
     Dosage: 900 MG, QW
     Route: 042
     Dates: start: 20110604, end: 20110619

REACTIONS (2)
  - INFECTION [None]
  - CEREBRAL THROMBOSIS [None]
